FAERS Safety Report 19420887 (Version 2)
Quarter: 2021Q3

REPORT INFORMATION
  Report Type: Spontaneous
  Country: US (occurrence: US)
  Receive Date: 20210616
  Receipt Date: 20210715
  Transmission Date: 20211014
  Serious: Yes (Other)
  Sender: FDA-Public Use
  Company Number: US-JNJFOC-20210619756

PATIENT
  Age: 51 Year
  Sex: Female
  Weight: 90.8 kg

DRUGS (2)
  1. STELARA [Suspect]
     Active Substance: USTEKINUMAB
     Indication: CROHN^S DISEASE
     Route: 058
     Dates: start: 2017
  2. STELARA [Suspect]
     Active Substance: USTEKINUMAB

REACTIONS (6)
  - Device issue [Unknown]
  - Product dose omission issue [Unknown]
  - Syringe issue [Unknown]
  - Vitamin D decreased [Unknown]
  - Crohn^s disease [Unknown]
  - Weight increased [Unknown]

NARRATIVE: CASE EVENT DATE: 202105
